FAERS Safety Report 10414822 (Version 1)
Quarter: 2014Q2

REPORT INFORMATION
  Report Type: Spontaneous
  Country: US (occurrence: None)
  Receive Date: 20140514
  Receipt Date: 20140514
  Transmission Date: 20141212
  Serious: Yes (Other)
  Sender: FDA-Public Use
  Company Number: 105738U

PATIENT
  Sex: 0

DRUGS (5)
  1. CIMZIA [Suspect]
  2. HUMIRA [Suspect]
  3. PREDNISONE [Suspect]
  4. REMICADE [Suspect]
  5. CANNABIS [Concomitant]

REACTIONS (3)
  - Anaemia [None]
  - Osteomalacia [None]
  - Infection [None]
